FAERS Safety Report 25456773 (Version 2)
Quarter: 2025Q3

REPORT INFORMATION
  Report Type: Report from Study
  Country: CA (occurrence: CA)
  Receive Date: 20250619
  Receipt Date: 20250717
  Transmission Date: 20251021
  Serious: Yes (Death, Other)
  Sender: TAKEDA
  Company Number: CA-TAKEDA-2025TUS056588

PATIENT
  Sex: Male

DRUGS (20)
  1. VEDOLIZUMAB [Suspect]
     Active Substance: VEDOLIZUMAB
     Indication: Colitis ulcerative
  2. VEDOLIZUMAB [Suspect]
     Active Substance: VEDOLIZUMAB
     Dosage: 300 MILLIGRAM, Q6WEEKS
     Dates: start: 20190402
  3. VEDOLIZUMAB [Suspect]
     Active Substance: VEDOLIZUMAB
     Indication: Colitis ulcerative
     Dosage: 108 MILLIGRAM, Q2WEEKS
     Dates: start: 20250117
  4. MELOXICAM [Concomitant]
     Active Substance: MELOXICAM
     Indication: Cardiac disorder
  5. RAMIPRIL [Concomitant]
     Active Substance: RAMIPRIL
  6. OXAZEPAM [Concomitant]
     Active Substance: OXAZEPAM
  7. CITALOPRAM [Concomitant]
     Active Substance: CITALOPRAM
  8. LANSOPRAZOLE [Concomitant]
     Active Substance: LANSOPRAZOLE
  9. IMURAN [Concomitant]
     Active Substance: AZATHIOPRINE
  10. AMLODIPINE [Concomitant]
     Active Substance: AMLODIPINE BESYLATE
  11. LIPITOR [Concomitant]
     Active Substance: ATORVASTATIN CALCIUM
  12. PRIMIDONE [Concomitant]
     Active Substance: PRIMIDONE
  13. ASACOL [Concomitant]
     Active Substance: MESALAMINE
  14. PREDNISONE [Concomitant]
     Active Substance: PREDNISONE
  15. TRAZODONE [Concomitant]
     Active Substance: TRAZODONE HYDROCHLORIDE
  16. ZOPICLONE [Concomitant]
     Active Substance: ZOPICLONE
  17. SINEMET [Concomitant]
     Active Substance: CARBIDOPA\LEVODOPA
  18. VITAMIN B12 [Concomitant]
     Active Substance: CYANOCOBALAMIN
  19. FLUTICASONE FUROATE [Concomitant]
     Active Substance: FLUTICASONE FUROATE
  20. PLAVIX [Concomitant]
     Active Substance: CLOPIDOGREL BISULFATE

REACTIONS (1)
  - Dementia [Fatal]
